FAERS Safety Report 8099086-5 (Version None)
Quarter: 2012Q1

REPORT INFORMATION
  Report Type: 
  Country: None (occurrence: None)
  Receive Date: 20120129
  Receipt Date: 20111027
  Transmission Date: 20120608
  Serious: No
  Sender: FDA-Public Use
  Company Number: US-ABBOTT-11P-163-0869095-00

PATIENT
  Age: 46 Year
  Sex: Female

DRUGS (3)
  1. MELOXICAM [Concomitant]
     Indication: ARTHRITIS
  2. FLUOXETINE [Concomitant]
     Indication: AFFECTIVE DISORDER
  3. HUMIRA [Suspect]
     Indication: PSORIASIS
     Dates: start: 20111017

REACTIONS (3)
  - SOMNOLENCE [None]
  - PARANOIA [None]
  - FATIGUE [None]
